FAERS Safety Report 4597642-X (Version None)
Quarter: 2005Q1

REPORT INFORMATION
  Report Type: 
  Country: None (occurrence: None)
  Receive Date: 20050303
  Receipt Date: 20050302
  Transmission Date: 20050727
  Serious: Yes (Other)
  Sender: FDA-Public Use
  Company Number: US-GLAXOSMITHKLINE-A0547975A

PATIENT
  Age: 83 Year
  Sex: Female

DRUGS (3)
  1. AVANDAMET [Suspect]
     Route: 048
  2. BENICAR [Concomitant]
     Indication: DRUG USE FOR UNKNOWN INDICATION
  3. PRAVACHOL [Concomitant]
     Indication: DRUG USE FOR UNKNOWN INDICATION

REACTIONS (6)
  - ANAEMIA [None]
  - BLOOD UREA INCREASED [None]
  - CREATININE RENAL CLEARANCE INCREASED [None]
  - GASTROINTESTINAL HAEMORRHAGE [None]
  - OEDEMA PERIPHERAL [None]
  - RENAL FAILURE [None]
